FAERS Safety Report 5511142-1 (Version None)
Quarter: 2007Q4

REPORT INFORMATION
  Report Type: 
  Country: None (occurrence: None)
  Receive Date: 20071109
  Receipt Date: 20071030
  Transmission Date: 20080405
  Serious: Yes (Hospitalization)
  Sender: FDA-Public Use
  Company Number: JP-WYE-H00973307

PATIENT
  Sex: Male
  Weight: 56 kg

DRUGS (27)
  1. MYLOTARG [Suspect]
     Indication: ACUTE MYELOID LEUKAEMIA RECURRENT
     Route: 041
     Dates: start: 20060913, end: 20060913
  2. MYLOTARG [Suspect]
     Route: 041
     Dates: start: 20060916, end: 20060916
  3. MYLOTARG [Suspect]
     Route: 041
     Dates: start: 20060919, end: 20060919
  4. BAKTAR [Concomitant]
     Indication: PROPHYLAXIS
     Dosage: 1 DOSE FORM/DAY
     Route: 048
  5. OMEPRAZOLE [Concomitant]
     Indication: PROPHYLAXIS
     Route: 048
  6. PROGRAF [Concomitant]
     Route: 048
  7. UNIPHYL [Concomitant]
     Route: 048
  8. BEZATOL - SLOW RELEASE [Concomitant]
     Indication: PROPHYLAXIS
     Route: 048
  9. PREDONINE [Concomitant]
     Route: 048
  10. CLARITHROMYCIN [Concomitant]
     Route: 048
     Dates: end: 20060928
  11. ESANBUTOL [Concomitant]
     Route: 048
     Dates: end: 20060928
  12. RIFADIN [Concomitant]
     Route: 048
     Dates: end: 20060928
  13. CIPROFLOXACIN [Concomitant]
     Route: 048
     Dates: end: 20060928
  14. PRIMPERAN INJ [Concomitant]
     Indication: PROPHYLAXIS
     Route: 048
  15. CODEINE SUL TAB [Concomitant]
     Route: 048
  16. LOXONIN [Concomitant]
     Route: 048
  17. LENDORMIN [Concomitant]
     Route: 048
  18. AMBISOME [Concomitant]
     Route: 041
  19. NOVOLIN R [Concomitant]
     Dosage: NOT PROVIDED
     Route: 058
  20. GRAN [Concomitant]
     Route: 058
     Dates: start: 20060922, end: 20061002
  21. FIRSTCIN [Concomitant]
     Route: 041
     Dates: start: 20060923, end: 20060928
  22. ROPION [Concomitant]
     Route: 041
     Dates: start: 20060928, end: 20061001
  23. MORPHINE HCL ELIXIR [Concomitant]
     Dosage: NOT PROVIDED
     Route: 041
     Dates: start: 20060928, end: 20061007
  24. MEROPEN [Concomitant]
     Route: 041
     Dates: start: 20060928
  25. TOBRACIN [Concomitant]
     Route: 041
     Dates: start: 20060929
  26. FUNGUARD [Concomitant]
     Route: 041
     Dates: start: 20060929, end: 20061001
  27. URSO 250 [Concomitant]
     Indication: PROPHYLAXIS
     Route: 048

REACTIONS (12)
  - ACUTE MYELOID LEUKAEMIA [None]
  - ALANINE AMINOTRANSFERASE INCREASED [None]
  - ASPARTATE AMINOTRANSFERASE INCREASED [None]
  - BLOOD ALKALINE PHOSPHATASE INCREASED [None]
  - BLOOD BILIRUBIN INCREASED [None]
  - BLOOD CREATININE INCREASED [None]
  - BLOOD PRESSURE DIASTOLIC INCREASED [None]
  - DISEASE PROGRESSION [None]
  - GAMMA-GLUTAMYLTRANSFERASE INCREASED [None]
  - NEUTROPHIL COUNT DECREASED [None]
  - PLEURISY [None]
  - SEPSIS [None]
